FAERS Safety Report 20052776 (Version 1)
Quarter: 2021Q4

REPORT INFORMATION
  Report Type: Spontaneous
  Country: IT (occurrence: IT)
  Receive Date: 20211110
  Receipt Date: 20211110
  Transmission Date: 20220303
  Serious: Yes (Life-Threatening, Other)
  Sender: FDA-Public Use
  Company Number: IT-Indicus Pharma-000813

PATIENT
  Age: 46 Year
  Sex: Female

DRUGS (3)
  1. LETROZOLE [Suspect]
     Active Substance: LETROZOLE
     Indication: Metastasis
     Dosage: DAILY CONTINUOUSLY
     Route: 048
     Dates: start: 201809
  2. PALBOCICLIB [Suspect]
     Active Substance: PALBOCICLIB
     Indication: Metastasis
     Dosage: AND 1 WEEK OFF., RESTARTED AT THE REDUCED DOSE OF 100 MG DAILY
     Route: 048
     Dates: start: 201809
  3. LEUPROLIDE ACETATE [Suspect]
     Active Substance: LEUPROLIDE ACETATE
     Indication: Metastasis
     Dosage: EVERY 28 DAYS.
     Route: 030
     Dates: start: 201809

REACTIONS (4)
  - Fatigue [Unknown]
  - Arthralgia [Unknown]
  - Hot flush [Unknown]
  - Neutropenia [Recovered/Resolved]
